FAERS Safety Report 12714961 (Version 2)
Quarter: 2016Q3

REPORT INFORMATION
  Report Type: Spontaneous
  Country: US (occurrence: US)
  Receive Date: 20160905
  Receipt Date: 20160922
  Transmission Date: 20161109
  Serious: Yes (Hospitalization)
  Sender: FDA-Public Use
  Company Number: US-TAKEDA-2016TUS015574

PATIENT
  Age: 55 Year
  Sex: Male
  Weight: 65 kg

DRUGS (1)
  1. ENTYVIO [Suspect]
     Active Substance: VEDOLIZUMAB
     Indication: CROHN^S DISEASE
     Dosage: UNK
     Route: 042

REACTIONS (2)
  - Optic neuritis [Not Recovered/Not Resolved]
  - Crohn^s disease [Unknown]

NARRATIVE: CASE EVENT DATE: 201603
